FAERS Safety Report 4390174-3 (Version None)
Quarter: 2004Q3

REPORT INFORMATION
  Report Type: 
  Country: None (occurrence: None)
  Receive Date: 20040706
  Receipt Date: 20040623
  Transmission Date: 20050211
  Serious: Yes (Hospitalization)
  Sender: FDA-Public Use
  Company Number: FR-GLAXOSMITHKLINE-B0336509A

PATIENT
  Age: 24 Year
  Sex: Female

DRUGS (5)
  1. DEROXAT [Suspect]
     Indication: ILL-DEFINED DISORDER
     Dosage: 20MG UNKNOWN
     Route: 048
     Dates: start: 20040430, end: 20040430
  2. ZYPREXA [Suspect]
     Route: 048
     Dates: start: 20040430, end: 20040430
  3. HAVLANE [Suspect]
     Dosage: 1G PER DAY
     Route: 048
     Dates: start: 20040430, end: 20040430
  4. LEXOMIL [Suspect]
     Route: 048
     Dates: start: 20040430, end: 20040430
  5. EQUANIL [Suspect]
     Dosage: 6UNIT PER DAY
     Route: 048
     Dates: start: 20040430, end: 20040430

REACTIONS (4)
  - AGITATION [None]
  - DRUG TOXICITY [None]
  - HYPERVENTILATION [None]
  - MIOSIS [None]
